FAERS Safety Report 4321465-X (Version None)
Quarter: 2004Q1

REPORT INFORMATION
  Report Type: 
  Country: None (occurrence: None)
  Receive Date: 20040322
  Receipt Date: 20030522
  Transmission Date: 20041129
  Serious: No
  Sender: FDA-Public Use
  Company Number: US-BRISTOL-MYERS SQUIBB COMPANY-12286852

PATIENT
  Age: 29 Year
  Sex: Female

DRUGS (2)
  1. MONISTAT [Suspect]
     Indication: VAGINAL MYCOSIS
     Route: 067
     Dates: start: 20030520, end: 20030520
  2. CONTRACEPTIVE [Concomitant]

REACTIONS (1)
  - VAGINAL DISCHARGE [None]
